FAERS Safety Report 23957782 (Version 1)
Quarter: 2024Q2

REPORT INFORMATION
  Report Type: Spontaneous
  Country: US (occurrence: None)
  Receive Date: 20240608
  Receipt Date: 20240608
  Transmission Date: 20240716
  Serious: No
  Sender: FDA-Public Use
  Company Number: None

PATIENT
  Age: 63 Year
  Sex: Female
  Weight: 52.65 kg

DRUGS (1)
  1. LOSARTAN [Suspect]
     Active Substance: LOSARTAN
     Indication: Blood pressure increased
     Dosage: OTHER QUANTITY : 1 TABLET(S);?FREQUENCY : DAILY;?
     Route: 048
     Dates: start: 20240220, end: 20240603

REACTIONS (5)
  - Pollakiuria [None]
  - Bladder disorder [None]
  - Bladder pain [None]
  - Micturition urgency [None]
  - Viral infection [None]

NARRATIVE: CASE EVENT DATE: 20240315
